FAERS Safety Report 9813645 (Version 2)
Quarter: 2014Q1

REPORT INFORMATION
  Report Type: Spontaneous
  Country: FI (occurrence: FI)
  Receive Date: 20140113
  Receipt Date: 20140116
  Transmission Date: 20141002
  Serious: Yes (Other)
  Sender: FDA-Public Use
  Company Number: FI-B.I. PHARMACEUTICALS,INC./RIDGEFIELD-2014-BI-01079SF

PATIENT
  Age: 75 Year
  Sex: Female

DRUGS (7)
  1. PRADAXA [Suspect]
     Indication: ATRIAL FIBRILLATION
     Dosage: 300 MG
     Route: 048
     Dates: start: 20130717, end: 20131111
  2. VOLTAREN [Concomitant]
  3. CRAMPITON [Concomitant]
     Dosage: DOSE PER APPLICATION: 150/150
  4. ARTHRYL [Concomitant]
     Dosage: 1.5 G
  5. PANADOL FORTE [Concomitant]
  6. TRIMOPAN [Concomitant]
     Dosage: 100 MG
  7. VAGIFEM [Concomitant]
     Dosage: 0.7143 MCG

REACTIONS (6)
  - Deep vein thrombosis [Recovered/Resolved]
  - Pain in extremity [Recovered/Resolved]
  - Gait disturbance [Recovered/Resolved]
  - Local swelling [Recovered/Resolved]
  - Joint injury [Recovered/Resolved]
  - Cold sweat [Recovered/Resolved]
